FAERS Safety Report 14733835 (Version 1)
Quarter: 2018Q2

REPORT INFORMATION
  Report Type: Spontaneous
  Country: US (occurrence: US)
  Receive Date: 20180409
  Receipt Date: 20180409
  Transmission Date: 20180711
  Serious: No
  Sender: FDA-Public Use
  Company Number: US-GLAXOSMITHKLINE-US2018058435

PATIENT
  Age: 43 Year
  Sex: Female

DRUGS (1)
  1. FLONASE [Suspect]
     Active Substance: FLUTICASONE PROPIONATE
     Indication: HYPERSENSITIVITY
     Dosage: UNK
     Dates: start: 20180401, end: 20180404

REACTIONS (3)
  - Anxiety [Unknown]
  - Panic attack [Unknown]
  - Palpitations [Unknown]

NARRATIVE: CASE EVENT DATE: 20180401
